FAERS Safety Report 10525346 (Version 1)
Quarter: 2014Q4

REPORT INFORMATION
  Report Type: Spontaneous
  Country: US (occurrence: US)
  Receive Date: 20141017
  Receipt Date: 20141017
  Transmission Date: 20150528
  Serious: Yes (Other)
  Sender: FDA-Public Use
  Company Number: US-SA-2014SA139774

PATIENT
  Age: 67 Year
  Sex: Female

DRUGS (2)
  1. LANTUS SOLOSTAR [Suspect]
     Active Substance: INSULIN GLARGINE
     Indication: TYPE 2 DIABETES MELLITUS
     Dosage: DOSE:40 UNIT(S)
     Route: 065
     Dates: start: 2009
  2. SOLOSTAR [Concomitant]
     Active Substance: DEVICE

REACTIONS (3)
  - Mobility decreased [Not Recovered/Not Resolved]
  - Drug administration error [Unknown]
  - Knee arthroplasty [Unknown]
